FAERS Safety Report 6926234-X (Version None)
Quarter: 2010Q3

REPORT INFORMATION
  Report Type: 
  Country: None (occurrence: None)
  Receive Date: 20100816
  Receipt Date: 20100802
  Transmission Date: 20110219
  Serious: Yes (Other)
  Sender: FDA-Public Use
  Company Number: GB-MYLANLABS-2010S1013975

PATIENT
  Age: 60 Year
  Sex: Female
  Weight: 71 kg

DRUGS (7)
  1. AZATHIOPRINE [Suspect]
     Indication: PSORIATIC ARTHROPATHY
     Route: 048
     Dates: start: 20100426
  2. AZATHIOPRINE [Suspect]
     Route: 048
     Dates: end: 20100519
  3. CALCICHEW D3 [Concomitant]
     Indication: OSTEOPOROSIS PROPHYLAXIS
     Route: 048
     Dates: start: 20090421
  4. DICLOFENAC SODIUM [Concomitant]
     Indication: PRODUCT USED FOR UNKNOWN INDICATION
     Route: 048
     Dates: start: 20080808
  5. IBUPROFEN [Concomitant]
     Indication: ANALGESIC THERAPY
     Route: 061
     Dates: start: 20090717
  6. METHOTREXATE [Concomitant]
     Indication: PRODUCT USED FOR UNKNOWN INDICATION
  7. OMEPRAZOLE [Concomitant]
     Indication: GASTROOESOPHAGEAL REFLUX PROPHYLAXIS
     Route: 048
     Dates: start: 20080808

REACTIONS (1)
  - MYASTHENIA GRAVIS [None]
